FAERS Safety Report 13423185 (Version 1)
Quarter: 2017Q2

REPORT INFORMATION
  Report Type: Spontaneous
  Country: US (occurrence: US)
  Receive Date: 20170410
  Receipt Date: 20170410
  Transmission Date: 20170830
  Serious: Yes (Other)
  Sender: FDA-Public Use
  Company Number: None

PATIENT
  Age: 24 Year
  Sex: Male
  Weight: 76.05 kg

DRUGS (4)
  1. ONE A DAY FOR MEN [Concomitant]
  2. B VITAMINS [Concomitant]
     Active Substance: CYANOCOBALAMIN\DEXPANTHENOL\NIACINAMIDE\PYRIDOXINE HYDROCHLORIDE\RIBOFLAVIN 5^-PHOSPHATE SODIUM\THIAMINE HYDROCHLORIDE\VITAMIN B COMPLEX
  3. FLONASE [Suspect]
     Active Substance: FLUTICASONE PROPIONATE
     Indication: MULTIPLE ALLERGIES
     Dosage: ?          OTHER STRENGTH:MCG;QUANTITY:1 SPRAY(S);?
     Route: 055
     Dates: start: 20170325, end: 20170407
  4. WHEY PROTEIN [Concomitant]
     Active Substance: WHEY

REACTIONS (29)
  - Micturition urgency [None]
  - Confusional state [None]
  - Mental impairment [None]
  - Feeling jittery [None]
  - Heart rate increased [None]
  - Feeling abnormal [None]
  - Visual impairment [None]
  - Hypertension [None]
  - Hypoaesthesia [None]
  - Panic attack [None]
  - Ear discomfort [None]
  - Dyspnoea [None]
  - Dizziness [None]
  - Thirst [None]
  - Hyperhidrosis [None]
  - Weight decreased [None]
  - Sensory disturbance [None]
  - Myalgia [None]
  - Fatigue [None]
  - Tremor [None]
  - Faeces discoloured [None]
  - Asthenia [None]
  - Peripheral coldness [None]
  - Arrhythmia [None]
  - Anxiety [None]
  - Malaise [None]
  - Muscle tightness [None]
  - Dysstasia [None]
  - Nausea [None]

NARRATIVE: CASE EVENT DATE: 20170330
